FAERS Safety Report 24085912 (Version 1)
Quarter: 2024Q3

REPORT INFORMATION
  Report Type: Spontaneous
  Country: US (occurrence: None)
  Receive Date: 20240712
  Receipt Date: 20240712
  Transmission Date: 20241017
  Serious: No
  Sender: Public
  Company Number: None

PATIENT
  Age: 42 Year
  Sex: Male
  Weight: 119.25 kg

DRUGS (1)
  1. CEQUA [Suspect]
     Active Substance: CYCLOSPORINE
     Indication: Dry eye
     Dosage: 1 DROP  TWICE A DAY ?FREQUENCY : TWICE A DAY;?
     Route: 047
     Dates: start: 20240405, end: 20240712

REACTIONS (3)
  - Thermal burns of eye [None]
  - Fatigue [None]
  - Application site burn [None]

NARRATIVE: CASE EVENT DATE: 20240405
